FAERS Safety Report 5581664-6 (Version None)
Quarter: 2008Q1

REPORT INFORMATION
  Report Type: 
  Country: None (occurrence: None)
  Receive Date: 20080104
  Receipt Date: 20071220
  Transmission Date: 20080703
  Serious: Yes (Death, Hospitalization)
  Sender: FDA-Public Use
  Company Number: GB-TEVA-165577ISR

PATIENT
  Age: 24 Year
  Sex: Male

DRUGS (1)
  1. IBUPROFEN [Suspect]
     Indication: HEADACHE

REACTIONS (21)
  - ACUTE RESPIRATORY DISTRESS SYNDROME [None]
  - ARTERIAL HAEMORRHAGE [None]
  - BLISTER [None]
  - CONJUNCTIVITIS [None]
  - DEPRESSED LEVEL OF CONSCIOUSNESS [None]
  - FOREIGN BODY SENSATION IN EYES [None]
  - HAEMODYNAMIC INSTABILITY [None]
  - INCREASED BRONCHIAL SECRETION [None]
  - LIP EROSION [None]
  - MUCOSAL EROSION [None]
  - MULTI-ORGAN FAILURE [None]
  - NIKOLSKY'S SIGN [None]
  - PHARYNGOLARYNGEAL PAIN [None]
  - PYREXIA [None]
  - RASH ERYTHEMATOUS [None]
  - RASH MORBILLIFORM [None]
  - RENAL FAILURE ACUTE [None]
  - SWELLING FACE [None]
  - SYSTEMIC INFLAMMATORY RESPONSE SYNDROME [None]
  - TACHYCARDIA [None]
  - TOXIC EPIDERMAL NECROLYSIS [None]
